FAERS Safety Report 13576470 (Version 6)
Quarter: 2020Q2

REPORT INFORMATION
  Report Type: Spontaneous
  Country: JP (occurrence: JP)
  Receive Date: 20170524
  Receipt Date: 20200428
  Transmission Date: 20200713
  Serious: Yes (Life-Threatening, Hospitalization, Disabling, Other)
  Sender: FDA-Public Use
  Company Number: JP-BRISTOL-MYERS SQUIBB COMPANY-BMS-2017-044601

PATIENT
  Age: 53 Year
  Sex: Female
  Weight: 34 kg

DRUGS (10)
  1. TAXOL [Suspect]
     Active Substance: PACLITAXEL
     Indication: NEOPLASM MALIGNANT
     Dosage: 235 MG, INTERMITTENT
     Route: 041
     Dates: start: 20170324, end: 20170417
  2. DEXART [Concomitant]
     Active Substance: DEXAMETHASONE SODIUM PHOSPHATE
     Indication: NEOPLASM MALIGNANT
     Dosage: 16.5 MG, INTERMITTENT
     Route: 041
     Dates: start: 20170324, end: 20170417
  3. DECADRON [Concomitant]
     Active Substance: DEXAMETHASONE
     Indication: PROPHYLAXIS
     Dosage: 6 MG, QD
     Route: 048
     Dates: start: 20170325, end: 20170327
  4. ELIQUIS [Suspect]
     Active Substance: APIXABAN
     Indication: EMBOLISM VENOUS
     Dosage: 10 MG, BID
     Route: 048
     Dates: start: 20170308, end: 20170424
  5. PARAPLATIN [Suspect]
     Active Substance: CARBOPLATIN
     Indication: NEOPLASM MALIGNANT
     Dosage: 640 MG, INTERMITTENT
     Route: 041
     Dates: start: 20170324, end: 20170417
  6. ELIQUIS [Suspect]
     Active Substance: APIXABAN
     Indication: PRODUCT USED FOR UNKNOWN INDICATION
     Dosage: 5 MG, BID
     Route: 048
     Dates: start: 201703, end: 201704
  7. MAGNESIUM OXIDE. [Concomitant]
     Active Substance: MAGNESIUM OXIDE
     Indication: CONSTIPATION
     Dosage: 330 MG, TID
     Route: 048
     Dates: start: 20170206, end: 20170417
  8. POLARAMINE [Concomitant]
     Active Substance: DEXCHLORPHENIRAMINE MALEATE
     Indication: NEOPLASM MALIGNANT
     Dosage: 5 MG, INTERMITTENT
     Route: 041
     Dates: start: 20170324, end: 20170417
  9. ALOXI [Concomitant]
     Active Substance: PALONOSETRON HYDROCHLORIDE
     Indication: NEOPLASM MALIGNANT
     Dosage: .75 MG, INTERMITTENT
     Route: 041
     Dates: start: 20170324, end: 20170417
  10. GASTER [Concomitant]
     Active Substance: FAMOTIDINE
     Indication: NEOPLASM MALIGNANT
     Dosage: 20 MG, INTERMITTENT
     Route: 041
     Dates: start: 20170324, end: 20170417

REACTIONS (2)
  - Endocarditis noninfective [Recovering/Resolving]
  - Cerebral infarction [Recovered/Resolved with Sequelae]

NARRATIVE: CASE EVENT DATE: 20170423
